FAERS Safety Report 11567846 (Version 1)
Quarter: 2015Q3

REPORT INFORMATION
  Report Type: Spontaneous
  Country: US (occurrence: US)
  Receive Date: 20150916
  Receipt Date: 20150916
  Transmission Date: 20151125
  Serious: No
  Sender: FDA-Public Use
  Company Number: US-ELI_LILLY_AND_COMPANY-US200908000670

PATIENT
  Age: 89 Year
  Sex: Female

DRUGS (12)
  1. PRILOSEC [Concomitant]
     Active Substance: OMEPRAZOLE MAGNESIUM
  2. TYLENOL EXTRA STRENGTH [Concomitant]
     Active Substance: ACETAMINOPHEN
     Dosage: 500 MG, DAILY (1/D)
  3. METOPROLOL [Concomitant]
     Active Substance: METOPROLOL
     Dosage: 25 MG, UNK
  4. OS-CAL + D [Concomitant]
  5. ZOCOR [Concomitant]
     Active Substance: SIMVASTATIN
  6. FORTEO [Suspect]
     Active Substance: TERIPARATIDE
     Indication: OSTEOPOROSIS
     Dosage: 20 UG, DAILY (1/D)
     Dates: start: 20081129
  7. MULTIVITAMIN [Concomitant]
     Active Substance: VITAMINS
  8. PEPCID [Concomitant]
     Active Substance: FAMOTIDINE
     Dosage: 20 MG, UNK
  9. ASPIRIN. [Concomitant]
     Active Substance: ASPIRIN
  10. FUROSEMIDE. [Concomitant]
     Active Substance: FUROSEMIDE
     Dosage: 20 MG, UNK
  11. MOBIC [Concomitant]
     Active Substance: MELOXICAM
     Dosage: 7.5 UNK, UNK
  12. COLACE [Concomitant]
     Active Substance: DOCUSATE SODIUM
     Dosage: 100 MG, UNK

REACTIONS (1)
  - Muscle rupture [Unknown]

NARRATIVE: CASE EVENT DATE: 200812
